FAERS Safety Report 8845667 (Version 1)
Quarter: 2012Q4

REPORT INFORMATION
  Report Type: 
  Country: US (occurrence: US)
  Receive Date: 20121017
  Receipt Date: 20121017
  Transmission Date: 20130627
  Serious: Yes (Other)
  Sender: FDA-Public Use
  Company Number: US-ROCHE-1143081

PATIENT
  Sex: Female
  Weight: 27.1 kg

DRUGS (2)
  1. NUTROPIN AQ [Suspect]
     Indication: GROWTH HORMONE DEFICIENCY
     Dosage: 0.3 mg/kg/week
     Route: 058
     Dates: end: 200004
  2. THYROXINE [Concomitant]
     Dosage: daily
     Route: 065

REACTIONS (5)
  - Neoplasm [Unknown]
  - Growth retardation [Unknown]
  - Dry skin [Unknown]
  - Constipation [Unknown]
  - Hemiparesis [Unknown]
